FAERS Safety Report 9611584 (Version 1)
Quarter: 2013Q4

REPORT INFORMATION
  Report Type: Spontaneous
  Country: GB (occurrence: GB)
  Receive Date: 20131010
  Receipt Date: 20131010
  Transmission Date: 20140711
  Serious: Yes (Other)
  Sender: FDA-Public Use
  Company Number: PHHY2013GB112788

PATIENT
  Age: 78 Year
  Sex: Female

DRUGS (2)
  1. IMATINIB [Suspect]
     Indication: GASTROINTESTINAL STROMAL TUMOUR
     Dosage: 400 MG, QD
  2. IMATINIB [Suspect]
     Dosage: 300/400 MG ALTERNATE DAYS

REACTIONS (1)
  - Pyoderma gangrenosum [Recovering/Resolving]
